FAERS Safety Report 7035064-2 (Version None)
Quarter: 2010Q4

REPORT INFORMATION
  Report Type: 
  Country: None (occurrence: None)
  Receive Date: 20101008
  Receipt Date: 20101002
  Transmission Date: 20110411
  Serious: Yes (Hospitalization)
  Sender: FDA-Public Use
  Company Number: US-JNJCH-2010022698

PATIENT
  Sex: Female
  Weight: 59 kg

DRUGS (2)
  1. ZYRTEC-D 12 HOUR [Suspect]
     Indication: NASAL CONGESTION
     Dosage: TEXT:1 TABLET 2X DAILY
     Route: 048
  2. MUCINEX [Suspect]
     Indication: NASAL CONGESTION
     Dosage: TEXT:UNSPECIFIED
     Route: 065

REACTIONS (7)
  - ANXIETY [None]
  - BURNING SENSATION [None]
  - DRUG INEFFECTIVE [None]
  - DYSPNOEA [None]
  - OXYGEN SATURATION DECREASED [None]
  - PANIC ATTACK [None]
  - WRONG DRUG ADMINISTERED [None]
